FAERS Safety Report 8512188-1 (Version None)
Quarter: 2012Q3

REPORT INFORMATION
  Report Type: 
  Country: None (occurrence: None)
  Receive Date: 20120716
  Receipt Date: 20110929
  Transmission Date: 20120928
  Serious: Yes (Other)
  Sender: FDA-Public Use
  Company Number: CA-ROCHE-1001901

PATIENT
  Age: 44 Year
  Sex: Female

DRUGS (1)
  1. AVASTIN [Suspect]
     Indication: EYE INFLAMMATION
     Dosage: START DATE UNKNOWN
     Route: 050

REACTIONS (4)
  - EYE IRRITATION [None]
  - LACRIMATION INCREASED [None]
  - EYE SWELLING [None]
  - EYE PAIN [None]
